FAERS Safety Report 16102728 (Version 2)
Quarter: 2019Q2

REPORT INFORMATION
  Report Type: Spontaneous
  Country: US (occurrence: US)
  Receive Date: 20190321
  Receipt Date: 20190401
  Transmission Date: 20190711
  Serious: No
  Sender: FDA-Public Use
  Company Number: US-009507513-1903USA004852

PATIENT
  Sex: Male

DRUGS (1)
  1. DULERA [Suspect]
     Active Substance: FORMOTEROL FUMARATE DIHYDRATE\MOMETASONE FUROATE
     Dosage: 2 PUFFS TAKEN EVERY 12 HOURS
     Route: 055
     Dates: end: 201903

REACTIONS (3)
  - Product dose omission [Unknown]
  - No adverse event [Unknown]
  - Product quality issue [Unknown]

NARRATIVE: CASE EVENT DATE: 20190309
